FAERS Safety Report 4601215-X (Version None)
Quarter: 2005Q1

REPORT INFORMATION
  Report Type: 
  Country: None (occurrence: None)
  Receive Date: 20050308
  Receipt Date: 20050226
  Transmission Date: 20050727
  Serious: Yes (Hospitalization, Other)
  Sender: FDA-Public Use
  Company Number: GB-JNJFOC-20050300315

PATIENT
  Age: 45 Year
  Sex: Female

DRUGS (16)
  1. DURAGESIC-100 [Suspect]
     Dosage: REACTION OCCURRED AT DOSE 150 UG/HR
     Route: 062
  2. DURAGESIC-100 [Suspect]
     Indication: PAIN
     Dosage: REACTION OCCURRED AT DOSE 150 UG/HR
     Route: 062
  3. DURAGESIC-100 [Suspect]
     Indication: PAIN
     Route: 062
  4. ETORICOXIB [Concomitant]
     Indication: BONE PAIN
     Route: 049
  5. ANASTROZOLE [Concomitant]
     Indication: BREAST CANCER
     Route: 049
  6. AMITRIPTYLINE HCL [Concomitant]
     Indication: NEURALGIA
     Route: 049
  7. LEVOMEPROMAZINE [Concomitant]
     Route: 049
  8. CITALOPRAM HYDROBROMIDE [Concomitant]
     Indication: DEPRESSION
     Route: 049
  9. LANSOPRAZOLE [Concomitant]
     Indication: GASTROINTESTINAL DISORDER THERAPY
     Route: 049
  10. CINNARIZINE [Concomitant]
     Indication: NAUSEA
     Route: 049
  11. PREDNISOLONE [Concomitant]
     Indication: NEOPLASM SWELLING
     Dosage: MANE.
     Route: 049
  12. GABAPENTIN [Concomitant]
     Indication: NEURALGIA
     Route: 049
  13. CO-DANTHRAMER [Concomitant]
     Route: 049
  14. CO-DANTHRAMER [Concomitant]
     Indication: CONSTIPATION
     Route: 049
  15. ASPIRIN [Concomitant]
     Indication: ANTIPLATELET THERAPY
     Route: 049
  16. ACTIQ [Concomitant]
     Route: 050

REACTIONS (1)
  - LOSS OF CONSCIOUSNESS [None]
